FAERS Safety Report 16679504 (Version 1)
Quarter: 2019Q3

REPORT INFORMATION
  Report Type: Spontaneous
  Country: GR (occurrence: GR)
  Receive Date: 20190807
  Receipt Date: 20190807
  Transmission Date: 20191004
  Serious: Yes (Death, Other)
  Sender: FDA-Public Use
  Company Number: GR-MYLANLABS-2019M1073510

PATIENT
  Age: 74 Year
  Sex: Male

DRUGS (3)
  1. ACYCLOVIR                          /00587301/ [Suspect]
     Active Substance: ACYCLOVIR
     Indication: MENINGITIS VIRAL
     Dosage: UNK
  2. MEROPENEM. [Suspect]
     Active Substance: MEROPENEM
     Indication: MENINGITIS VIRAL
     Dosage: UNK
  3. VANCOMYCIN [Suspect]
     Active Substance: VANCOMYCIN
     Indication: MENINGITIS VIRAL
     Dosage: UNK

REACTIONS (7)
  - Nervous system disorder [Unknown]
  - Atrial fibrillation [Unknown]
  - Off label use [Unknown]
  - Multiple organ dysfunction syndrome [Fatal]
  - Subdural haemorrhage [Unknown]
  - Drug ineffective for unapproved indication [Unknown]
  - Septic shock [Fatal]
